FAERS Safety Report 24641714 (Version 1)
Quarter: 2024Q4

REPORT INFORMATION
  Report Type: Spontaneous
  Country: US (occurrence: None)
  Receive Date: 20241118
  Receipt Date: 20241118
  Transmission Date: 20250114
  Serious: Yes (Disabling)
  Sender: Public
  Company Number: None

PATIENT
  Age: 65 Year
  Sex: Female
  Weight: 103.05 kg

DRUGS (1)
  1. CEFDINIR [Suspect]
     Active Substance: CEFDINIR
     Indication: Bacterial infection
     Dosage: FREQUENCY : TWICE A DAY;?
     Route: 048
     Dates: start: 20240801, end: 20240901

REACTIONS (3)
  - Cough [None]
  - Dry mouth [None]
  - Pain [None]

NARRATIVE: CASE EVENT DATE: 20240824
